FAERS Safety Report 6077717-9 (Version None)
Quarter: 2009Q1

REPORT INFORMATION
  Report Type: 
  Country: None (occurrence: None)
  Receive Date: 20090213
  Receipt Date: 20090206
  Transmission Date: 20090719
  Serious: Yes (Death, Other)
  Sender: FDA-Public Use
  Company Number: FR-ELI_LILLY_AND_COMPANY-FR200610004537

PATIENT
  Age: 58 Year
  Sex: Male
  Weight: 108 kg

DRUGS (9)
  1. GEMZAR [Suspect]
     Indication: BLADDER CANCER
     Dosage: 2000 MG/M2, UNKNOWN
     Route: 042
     Dates: start: 20060321, end: 20060622
  2. GEMZAR [Suspect]
     Dosage: UNK, UNKNOWN
     Route: 065
     Dates: start: 20070208, end: 20070101
  3. CISPLATIN [Concomitant]
     Indication: BLADDER CANCER
     Dosage: 100 MG/M2, OTHER
     Route: 042
     Dates: start: 20060321, end: 20060426
  4. CARBOPLATIN [Concomitant]
     Indication: BLADDER CANCER
     Dosage: UNK, UNKNOWN
     Route: 042
     Dates: start: 20060612, end: 20060622
  5. CARBOPLATIN [Concomitant]
     Dosage: UNK, UNKNOWN
     Route: 065
     Dates: start: 20060720, end: 20060907
  6. CARBOPLATIN [Concomitant]
     Dosage: UNK, UNKNOWN
     Route: 065
     Dates: start: 20070208, end: 20070101
  7. ATENOLOL [Concomitant]
     Indication: HYPERTENSION
     Route: 048
  8. TRIATEC [Concomitant]
     Indication: HYPERTENSION
     Route: 048
  9. INSULIN [Concomitant]
     Indication: DIABETES MELLITUS
     Route: 058

REACTIONS (6)
  - DEATH [None]
  - HYPERTENSION [None]
  - MALIGNANT NEOPLASM PROGRESSION [None]
  - RENAL FAILURE [None]
  - RETINOPATHY [None]
  - THROMBOCYTOPENIA [None]
